FAERS Safety Report 13931226 (Version 1)
Quarter: 2017Q3

REPORT INFORMATION
  Report Type: Spontaneous
  Country: IE (occurrence: IE)
  Receive Date: 20170903
  Receipt Date: 20170903
  Transmission Date: 20171127
  Serious: Yes (Hospitalization)
  Sender: FDA-Public Use
  Company Number: IE-GLENMARK PHARMACEUTICALS-2017GMK028709

PATIENT

DRUGS (10)
  1. LITHIUM. [Suspect]
     Active Substance: LITHIUM
     Indication: MANIA
  2. ARIPIPRAZOLE. [Suspect]
     Active Substance: ARIPIPRAZOLE
     Indication: BIPOLAR DISORDER
     Dosage: UNK
     Route: 065
  3. DIAZEPAM. [Suspect]
     Active Substance: DIAZEPAM
     Indication: BIPOLAR DISORDER
     Dosage: UNK
     Route: 065
  4. VALPROATE [Concomitant]
     Active Substance: VALPROIC ACID
     Indication: BIPOLAR DISORDER
     Dosage: UNK
     Route: 042
  5. VALPROATE [Concomitant]
     Active Substance: VALPROIC ACID
     Indication: MANIA
  6. LITHIUM. [Suspect]
     Active Substance: LITHIUM
     Indication: BIPOLAR DISORDER
     Dosage: UNK
     Route: 065
  7. ARIPIPRAZOLE. [Suspect]
     Active Substance: ARIPIPRAZOLE
     Indication: MANIA
  8. DIAZEPAM. [Suspect]
     Active Substance: DIAZEPAM
     Indication: MANIA
  9. LORAZEPAM. [Concomitant]
     Active Substance: LORAZEPAM
     Indication: BIPOLAR DISORDER
     Dosage: 12 MG, UNK
     Route: 065
  10. LORAZEPAM. [Concomitant]
     Active Substance: LORAZEPAM
     Indication: MANIA

REACTIONS (12)
  - Hypernatraemia [Unknown]
  - Diabetes insipidus [Unknown]
  - Catatonia [Unknown]
  - Drug ineffective [Unknown]
  - Incoherent [Unknown]
  - Waxy flexibility [Unknown]
  - Dehydration [Unknown]
  - Toxicity to various agents [Unknown]
  - Hypophagia [Not Recovered/Not Resolved]
  - Incontinence [Unknown]
  - General physical health deterioration [Unknown]
  - Multiple-drug resistance [Unknown]
